FAERS Safety Report 7704315-0 (Version None)
Quarter: 2011Q3

REPORT INFORMATION
  Report Type: 
  Country: None (occurrence: None)
  Receive Date: 20110823
  Receipt Date: 20110810
  Transmission Date: 20111222
  Serious: Yes (Other)
  Sender: FDA-Public Use
  Company Number: PHHY2011NO71960

PATIENT
  Sex: Female

DRUGS (1)
  1. EXELON [Suspect]
     Indication: DEMENTIA ALZHEIMER'S TYPE
     Dosage: 1.5 MG, BID
     Route: 048
     Dates: start: 20110525, end: 20110613

REACTIONS (5)
  - HALLUCINATION [None]
  - VOMITING [None]
  - CONFUSIONAL STATE [None]
  - NAUSEA [None]
  - ANXIETY [None]
